FAERS Safety Report 25123571 (Version 1)
Quarter: 2025Q1

REPORT INFORMATION
  Report Type: Spontaneous
  Country: US (occurrence: US)
  Receive Date: 20250326
  Receipt Date: 20250326
  Transmission Date: 20250408
  Serious: No
  Sender: GRIFOLS
  Company Number: US-IGSA-BIG0029905

PATIENT
  Sex: Male
  Weight: 59 kg

DRUGS (12)
  1. PROLASTIN-C LIQUID [Suspect]
     Active Substance: .ALPHA.1-PROTEINASE INHIBITOR HUMAN
     Indication: Alpha-1 antitrypsin deficiency
     Dosage: 3764 MILLIGRAM, Q.WK.
     Route: 042
  2. ELIQUIS [Concomitant]
     Active Substance: APIXABAN
  3. DIAZEPAM [Concomitant]
     Active Substance: DIAZEPAM
  4. ROBITUSSIN (GUAIFENESIN) [Concomitant]
     Active Substance: GUAIFENESIN
  5. SYMBICORT [Concomitant]
     Active Substance: BUDESONIDE\FORMOTEROL FUMARATE DIHYDRATE
  6. ALBUTEROL SULFATE [Concomitant]
     Active Substance: ALBUTEROL SULFATE
  7. SPIRIVA RESPIMAT [Concomitant]
     Active Substance: TIOTROPIUM BROMIDE
  8. PREDNISONE [Concomitant]
     Active Substance: PREDNISONE
  9. IBUPROFEN [Concomitant]
     Active Substance: IBUPROFEN
  10. TUMS [Concomitant]
     Active Substance: CALCIUM CARBONATE
  11. PROAIR DIGIHALER [Concomitant]
     Active Substance: ALBUTEROL SULFATE
  12. HYDROXYZINE PAMOATE [Concomitant]
     Active Substance: HYDROXYZINE PAMOATE

REACTIONS (3)
  - Rash macular [Unknown]
  - Asthenia [Unknown]
  - Therapy interrupted [Unknown]
